FAERS Safety Report 7894316-4 (Version None)
Quarter: 2011Q4

REPORT INFORMATION
  Report Type: 
  Country: None (occurrence: None)
  Receive Date: 20111104
  Receipt Date: 20111017
  Transmission Date: 20120403
  Serious: No
  Sender: FDA-Public Use
  Company Number: CZ-ELI_LILLY_AND_COMPANY-CZ200908003892

PATIENT
  Age: 9 Year
  Sex: Male

DRUGS (4)
  1. STRATTERA [Suspect]
     Indication: ATTENTION DEFICIT/HYPERACTIVITY DISORDER
     Dosage: 10 MG, DAILY (1/D)
     Route: 048
     Dates: start: 20081124
  2. RISPERDAL [Concomitant]
     Dosage: 1 MG, QD
  3. STRATTERA [Suspect]
     Dosage: 18 MG, QD
     Route: 065
     Dates: end: 20090601
  4. RISPERDAL [Concomitant]
     Dosage: 0.5 MG, DAILY (1/D)
     Route: 048
     Dates: start: 20081124

REACTIONS (1)
  - ELECTROCARDIOGRAM QT PROLONGED [None]
